FAERS Safety Report 10137653 (Version 6)
Quarter: 2015Q3

REPORT INFORMATION
  Report Type: Spontaneous
  Country: NO (occurrence: NO)
  Receive Date: 20140429
  Receipt Date: 20150826
  Transmission Date: 20151125
  Serious: Yes (Hospitalization, Other)
  Sender: FDA-Public Use
  Company Number: NO-PFIZER INC-2014113222

PATIENT
  Age: 50 Year
  Sex: Male

DRUGS (12)
  1. METHYLPREDNISOLONE SODIUM SUCCINATE. [Suspect]
     Active Substance: METHYLPREDNISOLONE SODIUM SUCCINATE
     Indication: GLOMERULONEPHRITIS
  2. CEFOTAXIME [Suspect]
     Active Substance: CEFOTAXIME SODIUM
     Indication: SEPSIS
     Dosage: UNK
  3. METHYLPREDNISOLONE SODIUM SUCCINATE. [Suspect]
     Active Substance: METHYLPREDNISOLONE SODIUM SUCCINATE
     Indication: ANTI-GLOMERULAR BASEMENT MEMBRANE ANTIBODY POSITIVE
     Dosage: 1 G, DAILY
     Route: 042
  4. METRONIDAZOLE. [Suspect]
     Active Substance: METRONIDAZOLE
     Indication: CLOSTRIDIUM COLITIS
     Dosage: UNK
  5. PREDNISONE. [Suspect]
     Active Substance: PREDNISONE
     Indication: ANTI-GLOMERULAR BASEMENT MEMBRANE ANTIBODY POSITIVE
     Dosage: 30 MG, DAILY
  6. VALGANCICLOVIR [Suspect]
     Active Substance: VALGANCICLOVIR
     Indication: CYTOMEGALOVIRUS INFECTION
     Dosage: UNK
  7. CYCLOPHOSPHAMIDE. [Suspect]
     Active Substance: CYCLOPHOSPHAMIDE
     Indication: GLOMERULONEPHRITIS
     Dosage: 50 MG, DAILY
     Route: 048
  8. AZATHIOPRINE. [Suspect]
     Active Substance: AZATHIOPRINE
     Dosage: 50 MG, DAILY
  9. CYCLOPHOSPHAMIDE. [Suspect]
     Active Substance: CYCLOPHOSPHAMIDE
     Indication: ANTI-GLOMERULAR BASEMENT MEMBRANE ANTIBODY POSITIVE
     Dosage: 100 MG, DAILY
     Route: 048
  10. TRIMETHOPRIM SULFA [Suspect]
     Active Substance: TRIMETHOPRIM SULFATE
     Indication: ANTIFUNGAL PROPHYLAXIS
     Dosage: 1 TABLET ONCE DAILY
  11. PREDNISONE. [Suspect]
     Active Substance: PREDNISONE
     Indication: GLOMERULONEPHRITIS
     Dosage: 60 MG, DAILY
     Route: 048
  12. ERYTHROMYCIN. [Suspect]
     Active Substance: ERYTHROMYCIN
     Indication: RESPIRATORY TRACT INFECTION
     Dosage: UNK
     Route: 065

REACTIONS (6)
  - Cytomegalovirus infection [Recovered/Resolved]
  - Neutropenia [Recovered/Resolved]
  - Bone marrow failure [Recovered/Resolved]
  - Thrombosis [Recovered/Resolved]
  - Diarrhoea [Recovered/Resolved]
  - Leukopenia [Recovered/Resolved]
